FAERS Safety Report 6327374-9 (Version None)
Quarter: 2009Q3

REPORT INFORMATION
  Report Type: 
  Country: None (occurrence: None)
  Receive Date: 20090821
  Receipt Date: 20090814
  Transmission Date: 20100115
  Serious: Yes (Hospitalization)
  Sender: FDA-Public Use
  Company Number: ENTC2009-0273

PATIENT
  Sex: Male

DRUGS (1)
  1. STALEVO 100 [Suspect]

REACTIONS (2)
  - PRURITUS [None]
  - TOXIC SKIN ERUPTION [None]
